FAERS Safety Report 4530452-8 (Version None)
Quarter: 2004Q4

REPORT INFORMATION
  Report Type: 
  Country: None (occurrence: None)
  Receive Date: 20041216
  Receipt Date: 20041216
  Transmission Date: 20050328
  Serious: Yes (Life-Threatening)
  Sender: FDA-Public Use
  Company Number: None

PATIENT
  Age: 46 Year
  Sex: Female
  Weight: 68.0396 kg

DRUGS (1)
  1. COZAAR [Suspect]
     Indication: HYPERTENSION
     Dosage: 100 MG   PER DAY   ORAL
     Route: 048
     Dates: start: 20040401, end: 20041209

REACTIONS (2)
  - ANGIONEUROTIC OEDEMA [None]
  - PERIORBITAL OEDEMA [None]
